FAERS Safety Report 11033533 (Version 3)
Quarter: 2015Q3

REPORT INFORMATION
  Report Type: Spontaneous
  Country: US (occurrence: US)
  Receive Date: 20150415
  Receipt Date: 20150717
  Transmission Date: 20151125
  Serious: No
  Sender: FDA-Public Use
  Company Number: US-JNJFOC-20150220304

PATIENT
  Age: 65 Year
  Sex: Female

DRUGS (5)
  1. ASPIRIN. [Concomitant]
     Active Substance: ASPIRIN
     Route: 065
  2. DICLOFENAC [Concomitant]
     Active Substance: DICLOFENAC
     Route: 065
  3. XARELTO [Suspect]
     Active Substance: RIVAROXABAN
     Indication: THROMBOSIS PROPHYLAXIS
     Route: 048
     Dates: start: 201501
  4. CAPTOPRIL. [Concomitant]
     Active Substance: CAPTOPRIL
     Route: 065
  5. TRAMADOL. [Concomitant]
     Active Substance: TRAMADOL
     Route: 065

REACTIONS (1)
  - Inappropriate schedule of drug administration [Unknown]

NARRATIVE: CASE EVENT DATE: 201501
